FAERS Safety Report 7594600-8 (Version None)
Quarter: 2011Q3

REPORT INFORMATION
  Report Type: 
  Country: None (occurrence: None)
  Receive Date: 20110707
  Receipt Date: 20110630
  Transmission Date: 20111222
  Serious: Yes (Death, Hospitalization)
  Sender: FDA-Public Use
  Company Number: US-CELGENEUS-163-21880-11060426

PATIENT
  Sex: Male

DRUGS (9)
  1. TERAZOSIN HCL [Concomitant]
     Route: 065
  2. FUROSEMIDE [Concomitant]
     Route: 065
  3. REVLIMID [Suspect]
     Dosage: 25 MILLIGRAM
     Route: 048
     Dates: start: 20110519
  4. DEXAMETHASONE [Concomitant]
     Route: 065
  5. LOVASTATIN [Concomitant]
     Route: 065
  6. HYDROCODONE BITARTRATE AND ACETAMINOPHEN [Concomitant]
     Route: 065
  7. LISINOPRIL [Concomitant]
     Route: 065
  8. GABAPENTIN [Concomitant]
     Route: 065
  9. ATENOLOL [Concomitant]
     Route: 065

REACTIONS (4)
  - UNRESPONSIVE TO STIMULI [None]
  - DEATH [None]
  - DEHYDRATION [None]
  - HYPOTENSION [None]
